FAERS Safety Report 24945114 (Version 2)
Quarter: 2025Q3

REPORT INFORMATION
  Report Type: Report from Study
  Country: US (occurrence: US)
  Receive Date: 20250208
  Receipt Date: 20250802
  Transmission Date: 20251021
  Serious: Yes (Other)
  Sender: ALEXION PHARMACEUTICALS
  Company Number: US-AstraZeneca-CH-00802218A

PATIENT
  Sex: Female

DRUGS (1)
  1. DAPAGLIFLOZIN [Suspect]
     Active Substance: DAPAGLIFLOZIN

REACTIONS (9)
  - Liver transplant [Unknown]
  - Primary amyloidosis [Unknown]
  - Chemotherapy [Unknown]
  - Bone marrow transplant [Unknown]
  - Atrial fibrillation [Unknown]
  - Cardiac failure chronic [Unknown]
  - Renal failure [Unknown]
  - Hypotension [Unknown]
  - Transient ischaemic attack [Unknown]
